FAERS Safety Report 25038311 (Version 1)
Quarter: 2025Q1

REPORT INFORMATION
  Report Type: Spontaneous
  Country: US (occurrence: US)
  Receive Date: 20250304
  Receipt Date: 20250304
  Transmission Date: 20250409
  Serious: No
  Sender: GLAUKOS
  Company Number: US-GLK-000611

PATIENT
  Sex: Female

DRUGS (2)
  1. TRAVOPROST [Suspect]
     Active Substance: TRAVOPROST
     Indication: Product used for unknown indication
     Route: 047
  2. TRAVOPROST [Suspect]
     Active Substance: TRAVOPROST

REACTIONS (2)
  - Cystoid macular oedema [Unknown]
  - Cystoid macular oedema [Unknown]
